FAERS Safety Report 10081082 (Version 1)
Quarter: 2014Q2

REPORT INFORMATION
  Report Type: Spontaneous
  Country: US (occurrence: None)
  Receive Date: 20140415
  Receipt Date: 20140415
  Transmission Date: 20141212
  Serious: Yes (Other)
  Sender: FDA-Public Use
  Company Number: None

PATIENT
  Age: 60 Year
  Sex: Female
  Weight: 85.7 kg

DRUGS (6)
  1. XELJANZ 5 MG PFIZER [Suspect]
     Indication: RHEUMATOID ARTHRITIS
     Route: 048
     Dates: start: 20131216, end: 20140303
  2. NAPROXEN [Concomitant]
  3. LEVOTHYROXINE [Concomitant]
  4. TARKA [Concomitant]
  5. LIOTHYRONINE [Concomitant]
  6. FOLIC ACID [Concomitant]

REACTIONS (1)
  - Breast cancer [None]
